FAERS Safety Report 4313988-4 (Version None)
Quarter: 2004Q1

REPORT INFORMATION
  Report Type: 
  Country: None (occurrence: None)
  Receive Date: 20040308
  Receipt Date: 20040308
  Transmission Date: 20041129
  Serious: Yes (Hospitalization)
  Sender: FDA-Public Use
  Company Number: None

PATIENT
  Sex: Male

DRUGS (15)
  1. PHENYTOIN [Suspect]
     Indication: CONVULSION
     Dosage: 300MG BID ORAL
     Route: 048
     Dates: start: 20031020, end: 20031104
  2. VIT C [Concomitant]
  3. LIPITOR [Concomitant]
  4. MULT VIT [Concomitant]
  5. PLAVIX [Concomitant]
  6. PREDNISONE [Concomitant]
  7. CELEBREX [Concomitant]
  8. TERAZOSIN HCL [Concomitant]
  9. ACTOS [Concomitant]
  10. INSULIN [Concomitant]
  11. LANTUS [Concomitant]
  12. DILANTIN [Concomitant]
  13. CLONIDINE [Concomitant]
  14. LABETALOL HCL [Concomitant]
  15. ZANTAC [Concomitant]

REACTIONS (4)
  - DRUG TOXICITY [None]
  - MEDICATION ERROR [None]
  - NYSTAGMUS [None]
  - SOMNOLENCE [None]
